FAERS Safety Report 8217907-X (Version None)
Quarter: 2012Q1

REPORT INFORMATION
  Report Type: 
  Country: None (occurrence: None)
  Receive Date: 20120319
  Receipt Date: 20120305
  Transmission Date: 20120608
  Serious: Yes (Hospitalization)
  Sender: FDA-Public Use
  Company Number: DE-ELI_LILLY_AND_COMPANY-DE201203000968

PATIENT
  Sex: Female

DRUGS (5)
  1. TEMAZEPAM [Concomitant]
     Dosage: UNK, UNKNOWN
  2. ZYPREXA [Suspect]
     Dosage: 5 MG, BID
     Route: 048
  3. LEVOTHYROXINE SODIUM [Concomitant]
     Dosage: UNK, UNKNOWN
  4. OLANZAPINE [Suspect]
     Indication: SCHIZOPHRENIA
     Dosage: 300 MG, EVERY TWO WEEKS
     Dates: start: 20120203
  5. ZYPREXA [Suspect]
     Dosage: 20 MG, UNK
     Route: 048

REACTIONS (7)
  - DRUG LEVEL DECREASED [None]
  - SUICIDAL IDEATION [None]
  - HOSPITALISATION [None]
  - ABDOMINAL DISCOMFORT [None]
  - HALLUCINATION [None]
  - DRUG INEFFECTIVE [None]
  - PSYCHOTIC DISORDER [None]
